FAERS Safety Report 9636649 (Version 2)
Quarter: 2013Q4

REPORT INFORMATION
  Report Type: Spontaneous
  Country: US (occurrence: US)
  Receive Date: 20131021
  Receipt Date: 20131021
  Transmission Date: 20140711
  Serious: No
  Sender: FDA-Public Use
  Company Number: US-AMGEN-USASP2013023939

PATIENT
  Age: 30 Year
  Sex: Female
  Weight: 88.88 kg

DRUGS (4)
  1. VECTIBIX [Suspect]
     Indication: COLON CANCER STAGE IV
     Dosage: 544 MG, UNK
     Route: 042
     Dates: start: 20130422
  2. LEUCOVORIN                         /00566701/ [Concomitant]
     Dosage: UNK
  3. FLUOROURACIL [Concomitant]
     Dosage: UNK
  4. IRINOTECAN [Concomitant]
     Dosage: UNK

REACTIONS (4)
  - Erythema of eyelid [Recovered/Resolved]
  - Ocular hyperaemia [Recovered/Resolved]
  - Nausea [Unknown]
  - Eye irritation [Recovered/Resolved]
